FAERS Safety Report 11894516 (Version 1)
Quarter: 2016Q1

REPORT INFORMATION
  Report Type: Spontaneous
  Country: US (occurrence: None)
  Receive Date: 20160106
  Receipt Date: 20160106
  Transmission Date: 20160526
  Serious: Yes (Hospitalization)
  Sender: FDA-Public Use
  Company Number: None

PATIENT
  Age: 75 Year
  Sex: Female
  Weight: 62.14 kg

DRUGS (2)
  1. BABY ASPIRIN [Concomitant]
     Active Substance: ASPIRIN
  2. CEFUROXIME AXETIL. [Suspect]
     Active Substance: CEFUROXIME AXETIL
     Indication: SINUSITIS
     Route: 048
     Dates: start: 20151123, end: 20151129

REACTIONS (19)
  - Dysgeusia [None]
  - Abdominal discomfort [None]
  - Decreased appetite [None]
  - Haematochezia [None]
  - Mucous stools [None]
  - Feeling abnormal [None]
  - Restlessness [None]
  - Dyspnoea [None]
  - Flatulence [None]
  - Fatigue [None]
  - Oropharyngeal pain [None]
  - Fungal infection [None]
  - Psychomotor hyperactivity [None]
  - Gingival pain [None]
  - Laryngitis [None]
  - Throat irritation [None]
  - Vomiting [None]
  - Insomnia [None]
  - Vulvovaginal mycotic infection [None]
